FAERS Safety Report 7397496-2 (Version None)
Quarter: 2011Q2

REPORT INFORMATION
  Report Type: 
  Country: None (occurrence: None)
  Receive Date: 20110406
  Receipt Date: 20110325
  Transmission Date: 20111010
  Serious: Yes (Hospitalization)
  Sender: FDA-Public Use
  Company Number: PHHY2011SE24904

PATIENT
  Sex: Male

DRUGS (10)
  1. KALEORID [Concomitant]
     Dosage: 750 MG, UNK
  2. FURIX [Concomitant]
     Dosage: 40 MG, UNK
  3. METOPROLOL SANDOZ [Suspect]
     Indication: CARDIAC FAILURE
     Dosage: 25 MG, QD
     Route: 048
     Dates: start: 20101209, end: 20101214
  4. OXASCAND [Concomitant]
     Dosage: 5 MG, UNK
  5. WARAN [Concomitant]
     Dosage: 2.5 MG, UNK
  6. VERAPAMIL [Concomitant]
     Dosage: 80 MG, UNK
  7. MOVIPREP [Concomitant]
  8. ZOPICLONE [Concomitant]
     Dosage: 5 MG, UNK
  9. OMEPRAZOLE [Concomitant]
     Dosage: 20 MG, UNK
  10. ACETAMINOPHEN [Concomitant]
     Dosage: 500 MG, UNK

REACTIONS (5)
  - HEPATIC FAILURE [None]
  - CONFUSIONAL STATE [None]
  - GALLBLADDER DISORDER [None]
  - FATIGUE [None]
  - HEPATIC STEATOSIS [None]
